FAERS Safety Report 5694860-4 (Version None)
Quarter: 2008Q2

REPORT INFORMATION
  Report Type: 
  Country: None (occurrence: None)
  Receive Date: 20080404
  Receipt Date: 20071214
  Transmission Date: 20081010
  Serious: No
  Sender: FDA-Public Use
  Company Number: A0699039A

PATIENT
  Age: 35 Year
  Sex: Female

DRUGS (7)
  1. ADVAIR HFA [Suspect]
     Indication: ASTHMA
     Dosage: 1PUFF TWICE PER DAY
     Route: 055
     Dates: start: 20030101
  2. PLAQUENIL [Concomitant]
  3. CELEBREX [Concomitant]
  4. FOLIC ACID [Concomitant]
  5. AMBIEN [Concomitant]
  6. OMEPRAZOLE [Concomitant]
  7. METHOTREXATE [Concomitant]

REACTIONS (1)
  - FUNGAL INFECTION [None]
